FAERS Safety Report 6506253-8 (Version None)
Quarter: 2009Q4

REPORT INFORMATION
  Report Type: 
  Country: None (occurrence: None)
  Receive Date: 20091218
  Receipt Date: 20091216
  Transmission Date: 20100525
  Serious: Yes (Death, Hospitalization)
  Sender: FDA-Public Use
  Company Number: PHEH2009US17929

PATIENT
  Sex: Male

DRUGS (2)
  1. EXELON [Interacting]
  2. ASPIRIN [Suspect]

REACTIONS (5)
  - DRUG INTERACTION [None]
  - GASTRIC HAEMORRHAGE [None]
  - GASTROINTESTINAL INFECTION [None]
  - HAEMATOCHEZIA [None]
  - RENAL CANCER [None]
